FAERS Safety Report 10758321 (Version 1)
Quarter: 2015Q1

REPORT INFORMATION
  Report Type: Spontaneous
  Country: US (occurrence: US)
  Receive Date: 20150203
  Receipt Date: 20150203
  Transmission Date: 20150721
  Serious: Yes (Hospitalization)
  Sender: FDA-Public Use
  Company Number: US-JNJFOC-20150120986

PATIENT
  Age: 50 Year
  Sex: Male

DRUGS (1)
  1. XARELTO [Suspect]
     Active Substance: RIVAROXABAN
     Indication: THROMBOSIS
     Route: 048
     Dates: start: 201301, end: 201302

REACTIONS (2)
  - Gastrointestinal haemorrhage [Recovering/Resolving]
  - Adrenal haemorrhage [Recovering/Resolving]

NARRATIVE: CASE EVENT DATE: 20130202
